FAERS Safety Report 7334048-4 (Version None)
Quarter: 2011Q1

REPORT INFORMATION
  Report Type: 
  Country: None (occurrence: None)
  Receive Date: 20110307
  Receipt Date: 20110221
  Transmission Date: 20110831
  Serious: Yes (Hospitalization, Other)
  Sender: FDA-Public Use
  Company Number: JP-CELGENEUS-087-21880-11022502

PATIENT
  Sex: Male

DRUGS (15)
  1. LENADEX [Suspect]
     Indication: MULTIPLE MYELOMA
     Dosage: 20 MILLIGRAM
     Route: 048
     Dates: start: 20101130, end: 20101203
  2. BLADDERON [Concomitant]
     Dosage: 200 MILLIGRAM
     Route: 048
     Dates: start: 20070710, end: 20101213
  3. LASIX [Concomitant]
     Indication: PROPHYLAXIS
     Dosage: 20 MILLIGRAM
     Route: 048
     Dates: start: 20071023, end: 20101213
  4. UBRETID [Concomitant]
     Dosage: 5 MILLIGRAM
     Route: 048
     Dates: start: 20100713, end: 20101213
  5. PREDONINE [Concomitant]
     Indication: MULTIPLE MYELOMA
     Dosage: 10 MILLIGRAM
     Route: 048
     Dates: start: 20101028, end: 20101213
  6. GASTER [Concomitant]
     Indication: PROPHYLAXIS
     Dosage: 40 MILLIGRAM
     Route: 041
     Dates: start: 20101212, end: 20101227
  7. BAKTAR [Concomitant]
     Indication: PROPHYLAXIS
     Dosage: 1 TABLET
     Route: 048
     Dates: start: 20070710, end: 20101213
  8. REVLIMID [Suspect]
     Indication: MULTIPLE MYELOMA
     Dosage: 10 MILLIGRAM
     Route: 048
     Dates: start: 20101130, end: 20101209
  9. ASPIRIN [Concomitant]
     Indication: PROPHYLAXIS
     Dosage: 100 MILLIGRAM
     Route: 048
     Dates: start: 20101130, end: 20101213
  10. URIEF [Concomitant]
     Dosage: 8 MILLIGRAM
     Route: 048
     Dates: start: 20100713, end: 20101213
  11. PROTECADIN [Concomitant]
     Indication: PROPHYLAXIS
     Dosage: 10 MILLIGRAM
     Route: 048
     Dates: start: 20070710, end: 20101213
  12. ITRIZOLE [Concomitant]
     Indication: PROPHYLAXIS
     Dosage: 200 MILLIGRAM
     Route: 048
     Dates: start: 20101005, end: 20101213
  13. THEOLONG [Concomitant]
     Dosage: 200 MILLIGRAM
     Route: 048
     Dates: start: 20101005, end: 20101213
  14. FUNGUARD [Concomitant]
     Indication: PROPHYLAXIS
     Dosage: 50 MILLIGRAM
     Route: 041
     Dates: start: 20101214, end: 20110112
  15. MAGMITT [Concomitant]
     Indication: MULTIPLE MYELOMA
     Dosage: 330 MILLIGRAM
     Route: 048
     Dates: start: 20070710, end: 20101213

REACTIONS (7)
  - HYPOKALAEMIA [None]
  - PLATELET COUNT DECREASED [None]
  - C-REACTIVE PROTEIN INCREASED [None]
  - HYPOXIA [None]
  - WHITE BLOOD CELL COUNT DECREASED [None]
  - BLOOD LACTATE DEHYDROGENASE INCREASED [None]
  - NEUTROPHIL COUNT DECREASED [None]
